FAERS Safety Report 21642688 (Version 3)
Quarter: 2022Q4

REPORT INFORMATION
  Report Type: Spontaneous
  Country: US (occurrence: US)
  Receive Date: 20221125
  Receipt Date: 20221209
  Transmission Date: 20230113
  Serious: No
  Sender: FDA-Public Use
  Company Number: US-GLAXOSMITHKLINE-US2022AMR175059

PATIENT
  Sex: Female

DRUGS (1)
  1. ZEJULA [Suspect]
     Active Substance: NIRAPARIB
     Indication: Ovarian cancer
     Dosage: 200 MG, QD
     Dates: start: 202211

REACTIONS (6)
  - Nausea [Not Recovered/Not Resolved]
  - Headache [Recovering/Resolving]
  - Muscular weakness [Recovering/Resolving]
  - Platelet count decreased [Unknown]
  - Fatigue [Unknown]
  - Palpitations [Unknown]
